FAERS Safety Report 22003666 (Version 1)
Quarter: 2023Q1

REPORT INFORMATION
  Report Type: Spontaneous
  Country: FR (occurrence: FR)
  Receive Date: 20230217
  Receipt Date: 20230217
  Transmission Date: 20230418
  Serious: Yes (Life-Threatening)
  Sender: FDA-Public Use
  Company Number: None

PATIENT
  Age: 16 Year
  Sex: Female
  Weight: 85 kg

DRUGS (5)
  1. SERTRALINE HYDROCHLORIDE [Suspect]
     Active Substance: SERTRALINE HYDROCHLORIDE
     Indication: Intentional overdose
     Dosage: 3 TABLETS OF 25MG, UNIT DOSE : 75 MG , FREQUENCY TIME : 1 TOTAL, DURATION : 1 DAYS
     Dates: start: 20210529, end: 20210529
  2. QUETIAPINE FUMARATE [Suspect]
     Active Substance: QUETIAPINE FUMARATE
     Indication: Intentional overdose
     Dosage: 3 TABLETS OF 50MG, UNIT DOSE : 150 MG , FREQUENCY TIME : 1 TOTAL, DURATION : 1 DAYS
     Dates: start: 20210529, end: 20210529
  3. ALPRAZOLAM [Suspect]
     Active Substance: ALPRAZOLAM
     Indication: Intentional overdose
     Dosage: 1 TABLET OF 0.25MG, UNIT DOSE: 0.25 MG , FREQUENCY TIME : 1 TOTAL, DURATION : 1 DAYS
     Dates: start: 20210529, end: 20210529
  4. LOPRAZOLAM [Suspect]
     Active Substance: LOPRAZOLAM
     Indication: Intentional overdose
     Dosage: 1 TABLET OF 1MG, HAVLANE, SCORED TABLET, UNIT DOSE: 1 MG , FREQUENCY TIME : 1 TOTAL, DURATION : 1 DA
     Dates: start: 20210529, end: 20210529
  5. NITRAZEPAM [Suspect]
     Active Substance: NITRAZEPAM
     Indication: Intentional overdose
     Dosage: 2 TABLETS OF 5MG, MOGADON 5 MG, SCORED TABLET, UNIT DOSE: 10 MG , FREQUENCY TIME : 1 TOTAL, DURATION
     Dates: start: 20210529, end: 20210529

REACTIONS (3)
  - Somnolence [Recovered/Resolved]
  - Intentional overdose [Recovered/Resolved]
  - Vertigo [Recovered/Resolved]

NARRATIVE: CASE EVENT DATE: 20210529
